FAERS Safety Report 5153207-2 (Version None)
Quarter: 2006Q4

REPORT INFORMATION
  Report Type: 
  Country: None (occurrence: None)
  Receive Date: 20061117
  Receipt Date: 20050609
  Transmission Date: 20070319
  Serious: Yes (Disabling)
  Sender: FDA-Public Use
  Company Number: US-ROCHE-407337

PATIENT
  Age: 29 Year
  Sex: Female
  Weight: 83.9 kg

DRUGS (1)
  1. ACCUTANE [Suspect]
     Indication: ACNE
     Route: 048
     Dates: start: 19980510, end: 19981020

REACTIONS (18)
  - ALANINE AMINOTRANSFERASE INCREASED [None]
  - AUTOIMMUNE DISORDER [None]
  - C-REACTIVE PROTEIN INCREASED [None]
  - COLITIS [None]
  - COLITIS ULCERATIVE [None]
  - CROHN'S DISEASE [None]
  - GASTROINTESTINAL DISORDER [None]
  - GASTROOESOPHAGEAL REFLUX DISEASE [None]
  - GESTATIONAL DIABETES [None]
  - INFLAMMATORY BOWEL DISEASE [None]
  - INTESTINAL HAEMORRHAGE [None]
  - LIP DRY [None]
  - MULTI-ORGAN DISORDER [None]
  - PREGNANCY [None]
  - PREMATURE LABOUR [None]
  - PREMATURE RUPTURE OF MEMBRANES [None]
  - RECTAL HAEMORRHAGE [None]
  - RED BLOOD CELL SEDIMENTATION RATE INCREASED [None]
